FAERS Safety Report 10600429 (Version 1)
Quarter: 2014Q4

REPORT INFORMATION
  Report Type: Spontaneous
  Country: CA (occurrence: CA)
  Receive Date: 20141124
  Receipt Date: 20141124
  Transmission Date: 20150529
  Serious: Yes (Other)
  Sender: FDA-Public Use
  Company Number: CA-CIPLA LTD.-2014CA02066

PATIENT

DRUGS (8)
  1. DULOXETINE [Concomitant]
     Active Substance: DULOXETINE
  2. CYCLOPHOSPHAMIDE. [Suspect]
     Active Substance: CYCLOPHOSPHAMIDE
     Indication: BREAST CANCER
  3. EPIRUBICIN [Suspect]
     Active Substance: EPIRUBICIN
     Indication: BREAST CANCER
  4. 5-FLUOROURACIL [Suspect]
     Active Substance: FLUOROURACIL
     Indication: BREAST CANCER
  5. DOCETAXEL. [Suspect]
     Active Substance: DOCETAXEL
     Indication: BREAST CANCER
  6. PEG-FILGRASTIM [Concomitant]
     Indication: BREAST CANCER
  7. CELECOXIB. [Concomitant]
     Active Substance: CELECOXIB
  8. HYDROXYQUININE [Concomitant]

REACTIONS (1)
  - Subacute cutaneous lupus erythematosus [Recovered/Resolved]
